FAERS Safety Report 18676301 (Version 1)
Quarter: 2020Q4

REPORT INFORMATION
  Report Type: Spontaneous
  Country: US (occurrence: US)
  Receive Date: 20201229
  Receipt Date: 20201229
  Transmission Date: 20210114
  Serious: Yes (Hospitalization, Other)
  Sender: FDA-Public Use
  Company Number: US-PFIZER INC-2020512035

PATIENT
  Age: 40 Year
  Sex: Female

DRUGS (3)
  1. CYCLOPHOSPHAMIDE. [Suspect]
     Active Substance: CYCLOPHOSPHAMIDE
     Indication: BREAST CANCER
     Dosage: 650 MG, CYCLIC (THREE WEEKS FOR A TOTAL OF SIX CYCLES)
     Dates: start: 19800811
  2. DOXORUBICIN HCL [Suspect]
     Active Substance: DOXORUBICIN HYDROCHLORIDE
     Indication: BREAST CANCER
     Dosage: 65 MG, CYCLIC (THREE WEEKS FOR A TOTAL OF SIX CYCLES)
     Dates: start: 19800811
  3. 5-FLUOROURACIL [FLUOROURACIL] [Suspect]
     Active Substance: FLUOROURACIL
     Indication: BREAST CANCER
     Dosage: 650 MG, CYCLIC (THREE WEEKS FOR A TOTAL OF SIX CYCLES)
     Dates: start: 19800811

REACTIONS (1)
  - Osteonecrosis [Unknown]

NARRATIVE: CASE EVENT DATE: 198406
